FAERS Safety Report 9553319 (Version 1)
Quarter: 2013Q3

REPORT INFORMATION
  Report Type: Spontaneous
  Country: US (occurrence: None)
  Receive Date: 20130724
  Receipt Date: 20130724
  Transmission Date: 20140515
  Serious: Yes (Other)
  Sender: FDA-Public Use
  Company Number: PHEH2012US022667

PATIENT
  Age: 30 Year
  Sex: Female

DRUGS (1)
  1. GLEEVEC [Suspect]
     Indication: SYNOVITIS

REACTIONS (4)
  - Malignant neoplasm progression [None]
  - Drug ineffective [None]
  - Fatigue [None]
  - Neoplasm progression [None]
